FAERS Safety Report 8045418-3 (Version None)
Quarter: 2012Q1

REPORT INFORMATION
  Report Type: 
  Country: None (occurrence: None)
  Receive Date: 20120111
  Receipt Date: 20120111
  Transmission Date: 20120608
  Serious: No
  Sender: FDA-Public Use
  Company Number: None

PATIENT
  Age: 80 Year
  Sex: Female
  Weight: 90.7194 kg

DRUGS (6)
  1. VESICARE [Suspect]
     Indication: INCONTINENCE
     Dosage: 10MG 1/DA ORAL
     Route: 048
  2. SYNTHROID [Concomitant]
  3. CELEBREX [Concomitant]
  4. DIGOXIN [Concomitant]
  5. PREMERIN [Concomitant]
  6. COUMADIN [Concomitant]

REACTIONS (1)
  - DEMENTIA [None]
